FAERS Safety Report 6134076-0 (Version None)
Quarter: 2009Q1

REPORT INFORMATION
  Report Type: 
  Country: None (occurrence: None)
  Receive Date: 20090326
  Receipt Date: 20090319
  Transmission Date: 20090719
  Serious: Yes (Hospitalization)
  Sender: FDA-Public Use
  Company Number: PHHO2009DE03106

PATIENT
  Sex: Male
  Weight: 102 kg

DRUGS (6)
  1. CYCLOSPORINE [Suspect]
     Indication: RENAL TRANSPLANT
     Dosage: 130 MG, BID
     Route: 048
     Dates: start: 20080302
  2. MYFORTIC [Suspect]
     Indication: RENAL TRANSPLANT
     Dosage: UNK
     Dates: start: 20080302
  3. PREDNISOLONE [Suspect]
     Indication: RENAL TRANSPLANT
     Dosage: 10 MG, QD
     Route: 048
     Dates: start: 20080302
  4. MYCOPHENOLATE MOFETIL [Suspect]
     Indication: RENAL TRANSPLANT
  5. NO TREATMENT RECEIVED NOMED [Suspect]
     Indication: RENAL TRANSPLANT
     Dosage: 130 MG, BID
     Route: 048
  6. VALGANCICLOVIR HCL [Concomitant]
     Dosage: 900 MG, UNK
     Route: 048
     Dates: start: 20090226

REACTIONS (4)
  - BRONCHOALVEOLAR LAVAGE [None]
  - COUGH [None]
  - PNEUMONIA ESCHERICHIA [None]
  - PYREXIA [None]
